FAERS Safety Report 25285751 (Version 1)
Quarter: 2025Q2

REPORT INFORMATION
  Report Type: Spontaneous
  Country: GB (occurrence: GB)
  Receive Date: 20250509
  Receipt Date: 20250509
  Transmission Date: 20250716
  Serious: Yes (Hospitalization, Disabling, Other)
  Sender: CIPLA
  Company Number: GB-MHRA-MED-202504261116020690-PHWZR

PATIENT

DRUGS (5)
  1. FINASTERIDE [Suspect]
     Active Substance: FINASTERIDE
     Indication: Adverse drug reaction
     Route: 065
     Dates: start: 20231003, end: 20240123
  2. FINASTERIDE [Suspect]
     Active Substance: FINASTERIDE
     Indication: Urine flow decreased
     Route: 065
     Dates: start: 20231003, end: 20240123
  3. FINASTERIDE [Suspect]
     Active Substance: FINASTERIDE
     Indication: Prostatomegaly
  4. ASPIRIN [Concomitant]
     Active Substance: ASPIRIN
     Indication: Product used for unknown indication
     Route: 065
  5. LANSOPRAZOLE [Concomitant]
     Active Substance: LANSOPRAZOLE
     Indication: Product used for unknown indication
     Route: 065

REACTIONS (2)
  - Amnesia [Recovered/Resolved with Sequelae]
  - Medication error [Unknown]

NARRATIVE: CASE EVENT DATE: 20231025
